FAERS Safety Report 21575663 (Version 2)
Quarter: 2022Q4

REPORT INFORMATION
  Report Type: Report from Study
  Country: US (occurrence: US)
  Receive Date: 20221110
  Receipt Date: 20221209
  Transmission Date: 20230112
  Serious: Yes (Death, Hospitalization)
  Sender: FDA-Public Use
  Company Number: US-BAUSCH-BL-2022-025050

PATIENT
  Age: 72 Year
  Sex: Female

DRUGS (1)
  1. XIFAXAN [Suspect]
     Active Substance: RIFAXIMIN
     Indication: Product used for unknown indication
     Dosage: 4 MONTHS
     Route: 048

REACTIONS (2)
  - Hepatic failure [Fatal]
  - Abdominal cavity drainage [Not Recovered/Not Resolved]

NARRATIVE: CASE EVENT DATE: 20220611
